FAERS Safety Report 12308248 (Version 3)
Quarter: 2016Q2

REPORT INFORMATION
  Report Type: Spontaneous
  Country: NO (occurrence: NO)
  Receive Date: 20160426
  Receipt Date: 20160613
  Transmission Date: 20160815
  Serious: Yes (Life-Threatening, Hospitalization)
  Sender: FDA-Public Use
  Company Number: NO-GUERBET LLC-1051049

PATIENT
  Age: 33 Year
  Sex: Female

DRUGS (4)
  1. MARCAIN(BUPIVACAINE HYDROCHLORIDE) [Suspect]
     Active Substance: BUPIVACAINE HYDROCHLORIDE
     Route: 014
     Dates: start: 20160413, end: 20160413
  2. SALINE(SODIUM CHLORIDE) [Suspect]
     Active Substance: SODIUM CHLORIDE
     Route: 014
     Dates: start: 20160413, end: 20160413
  3. DOTAREM [Suspect]
     Active Substance: GADOTERATE MEGLUMINE
     Indication: ARTHROGRAM
     Route: 014
     Dates: start: 20160413, end: 20160413
  4. IOMERON [Suspect]
     Active Substance: IOMEPROL
     Route: 014
     Dates: start: 20160413, end: 20160413

REACTIONS (6)
  - Aphonia [Recovered/Resolved]
  - Nausea [Recovered/Resolved]
  - Dyspnoea [Recovered/Resolved]
  - Swollen tongue [Recovered/Resolved]
  - Product use issue [Recovered/Resolved]
  - Anaphylactic reaction [Recovered/Resolved]

NARRATIVE: CASE EVENT DATE: 20160413
